FAERS Safety Report 20649394 (Version 1)
Quarter: 2022Q1

REPORT INFORMATION
  Report Type: Spontaneous
  Country: US (occurrence: None)
  Receive Date: 20220329
  Receipt Date: 20220329
  Transmission Date: 20220423
  Serious: No
  Sender: FDA-Public Use
  Company Number: None

PATIENT
  Age: 64 Year
  Sex: Female
  Weight: 76.5 kg

DRUGS (4)
  1. PAXLOVID [Suspect]
     Active Substance: NIRMATRELVIR\RITONAVIR
     Indication: COVID-19
     Dosage: OTHER QUANTITY : 3 TABLET(S);?OTHER FREQUENCY : 3 TWICE DAILY;?
     Route: 048
     Dates: start: 20220323, end: 20220328
  2. LEVOTHYROXINE [Concomitant]
     Active Substance: LEVOTHYROXINE
  3. CALCIUM [Concomitant]
     Active Substance: CALCIUM
  4. D [Concomitant]

REACTIONS (9)
  - Dysgeusia [None]
  - Headache [None]
  - Chills [None]
  - Myalgia [None]
  - Asthenia [None]
  - Fatigue [None]
  - Sleep disorder [None]
  - Decreased appetite [None]
  - Chest pain [None]

NARRATIVE: CASE EVENT DATE: 20220323
